FAERS Safety Report 9153300 (Version 1)
Quarter: 2013Q1

REPORT INFORMATION
  Report Type: Spontaneous
  Country: US (occurrence: None)
  Receive Date: 20130304
  Receipt Date: 20130304
  Transmission Date: 20140127
  Serious: Yes (Hospitalization)
  Sender: FDA-Public Use
  Company Number: None

PATIENT
  Sex: Female
  Weight: 66.5 kg

DRUGS (6)
  1. CYCLOPHOSPHAMIDE [Suspect]
  2. DOXORUBICIN HYDROCHLORIDE [Suspect]
  3. ETOPOSIDE (VP-16) [Suspect]
  4. PREDNISONE [Suspect]
  5. RITUXIMAB (MOAB C2B8 ANTI CD20, CHIMERIC) [Suspect]
  6. VINCRISTINE SULFATE [Suspect]

REACTIONS (2)
  - Nausea [None]
  - Vomiting [None]
